FAERS Safety Report 16163482 (Version 1)
Quarter: 2019Q2

REPORT INFORMATION
  Report Type: Spontaneous
  Country: US (occurrence: US)
  Receive Date: 20190405
  Receipt Date: 20190405
  Transmission Date: 20190711
  Serious: Yes (Other)
  Sender: FDA-Public Use
  Company Number: US-009507513-1903USA012730

PATIENT
  Sex: Female
  Weight: 79.37 kg

DRUGS (2)
  1. IMPLANON [Suspect]
     Active Substance: ETONOGESTREL
     Dosage: 1 DOSAGE FORM
     Dates: start: 2011
  2. NEXPLANON [Suspect]
     Active Substance: ETONOGESTREL
     Dosage: 1 DOSAGE FORM
     Route: 059
     Dates: start: 2016, end: 2019

REACTIONS (5)
  - Device dislocation [Not Recovered/Not Resolved]
  - Complication of device removal [Not Recovered/Not Resolved]
  - Overdose [Unknown]
  - Complication associated with device [Recovered/Resolved]
  - Device deployment issue [Not Recovered/Not Resolved]

NARRATIVE: CASE EVENT DATE: 2016
